FAERS Safety Report 8936617 (Version 1)
Quarter: 2012Q4

REPORT INFORMATION
  Report Type: Report from Study
  Country: HU (occurrence: HU)
  Receive Date: 20121130
  Receipt Date: 20121130
  Transmission Date: 20130627
  Serious: Yes (Hospitalization, Other)
  Sender: FDA-Public Use
  Company Number: HU-ROCHE-1076815

PATIENT
  Age: 53 Year
  Sex: Female

DRUGS (2)
  1. CAPECITABINE [Suspect]
     Indication: PRODUCT USED FOR UNKNOWN INDICATION
     Route: 048
  2. CISPLATIN [Concomitant]

REACTIONS (4)
  - Anaemia [Not Recovered/Not Resolved]
  - Vomiting [Unknown]
  - Nausea [Unknown]
  - Terminal state [Unknown]
